FAERS Safety Report 23169306 (Version 1)
Quarter: 2023Q4

REPORT INFORMATION
  Report Type: Report from Study
  Country: US (occurrence: US)
  Receive Date: 20231110
  Receipt Date: 20231110
  Transmission Date: 20240109
  Serious: Yes (Other)
  Sender: FDA-Public Use
  Company Number: US-ABBVIE-5487466

PATIENT
  Sex: Female

DRUGS (1)
  1. RINVOQ [Suspect]
     Active Substance: UPADACITINIB
     Indication: Rheumatoid arthritis
     Route: 048
     Dates: start: 20230131

REACTIONS (6)
  - Cataract [Not Recovered/Not Resolved]
  - Fall [Recovering/Resolving]
  - Glaucoma [Unknown]
  - Diplopia [Unknown]
  - Head injury [Unknown]
  - Neck mass [Unknown]

NARRATIVE: CASE EVENT DATE: 20230101
